FAERS Safety Report 4560911-3 (Version None)
Quarter: 2005Q1

REPORT INFORMATION
  Report Type: 
  Country: None (occurrence: None)
  Receive Date: 20050126
  Receipt Date: 20040105
  Transmission Date: 20050727
  Serious: Yes (Disabling)
  Sender: FDA-Public Use
  Company Number: US-BRISTOL-MYERS SQUIBB COMPANY-12469391

PATIENT
  Age: 58 Year
  Sex: Female
  Weight: 99 kg

DRUGS (17)
  1. METFORMIN HCL [Suspect]
     Indication: DIABETES MELLITUS
     Route: 048
  2. GLYBURIDE [Concomitant]
  3. REGULAR INSULIN [Concomitant]
  4. NPH INSULIN [Concomitant]
  5. COZAAR [Concomitant]
  6. PRINIVIL [Concomitant]
  7. FERROUS SULFATE TAB [Concomitant]
  8. ZOCOR [Concomitant]
  9. NEPHROCAPS [Concomitant]
  10. PLAVIX [Concomitant]
  11. VITAMIN B6 [Concomitant]
  12. TOBRADEX [Concomitant]
  13. PROZAC [Concomitant]
  14. FOLIC ACID [Concomitant]
  15. WELLBUTRIN [Concomitant]
  16. TOPAMAX [Concomitant]
  17. VITAMIN E [Concomitant]

REACTIONS (1)
  - VITAMIN B12 DEFICIENCY [None]
